FAERS Safety Report 4649362-0 (Version None)
Quarter: 2005Q2

REPORT INFORMATION
  Report Type: 
  Country: None (occurrence: None)
  Receive Date: 20050428
  Receipt Date: 20050428
  Transmission Date: 20051028
  Serious: Yes (Other)
  Sender: FDA-Public Use
  Company Number: None

PATIENT
  Age: 30 Year
  Sex: Female
  Weight: 90.5 kg

DRUGS (1)
  1. LOVENOX [Suspect]
     Indication: THROMBOPHLEBITIS
     Dosage: 90 MG   BID   CUTANEOUS
     Route: 003
     Dates: start: 20050426, end: 20050429

REACTIONS (1)
  - MEDICATION ERROR [None]
